FAERS Safety Report 5511038-5 (Version None)
Quarter: 2007Q4

REPORT INFORMATION
  Report Type: 
  Country: None (occurrence: None)
  Receive Date: 20071109
  Receipt Date: 20071030
  Transmission Date: 20080405
  Serious: Yes (Hospitalization)
  Sender: FDA-Public Use
  Company Number: FR-JNJFOC-20071007601

PATIENT
  Age: 40 Year
  Sex: Male

DRUGS (12)
  1. OFLOXACIN [Suspect]
     Indication: DRUG USE FOR UNKNOWN INDICATION
     Route: 065
     Dates: start: 20070822, end: 20070827
  2. FENTANYL [Suspect]
     Indication: DRUG USE FOR UNKNOWN INDICATION
     Route: 065
     Dates: start: 20070723, end: 20070913
  3. NOZINAN [Suspect]
     Indication: DRUG USE FOR UNKNOWN INDICATION
     Route: 065
     Dates: start: 20070806, end: 20070906
  4. PERFALGAN [Suspect]
     Indication: DRUG USE FOR UNKNOWN INDICATION
     Route: 065
  5. OGASTORO [Suspect]
     Indication: GASTRIC ULCER
     Route: 042
     Dates: start: 20070805, end: 20070905
  6. HUMALOG [Suspect]
     Indication: DRUG USE FOR UNKNOWN INDICATION
     Route: 065
  7. HYDROCORTISONE [Suspect]
     Indication: DRUG USE FOR UNKNOWN INDICATION
     Route: 042
  8. PROPOFOL [Suspect]
     Indication: DRUG USE FOR UNKNOWN INDICATION
     Route: 065
  9. NIMBEX [Suspect]
     Indication: DRUG USE FOR UNKNOWN INDICATION
     Route: 048
     Dates: start: 20070723, end: 20070822
  10. VANCOMYCIN [Concomitant]
     Route: 065
  11. TAVANIC [Concomitant]
     Route: 065
  12. PIPERACILLIN AND TAZOBACTAM [Concomitant]
     Route: 065

REACTIONS (1)
  - NEUTROPENIA [None]
